FAERS Safety Report 18322637 (Version 1)
Quarter: 2020Q3

REPORT INFORMATION
  Report Type: Spontaneous
  Country: US (occurrence: US)
  Receive Date: 20200929
  Receipt Date: 20200929
  Transmission Date: 20201103
  Serious: Yes (Death)
  Sender: FDA-Public Use
  Company Number: US-PFIZER INC-2020371557

PATIENT
  Age: 42 Year
  Sex: Male

DRUGS (4)
  1. CHLORAMPHENICOL [Suspect]
     Active Substance: CHLORAMPHENICOL
     Indication: GASTROENTERITIS SALMONELLA
     Dosage: UNK
  2. CEFTIZOXIME [Suspect]
     Active Substance: CEFTIZOXIME
     Indication: GASTROENTERITIS SALMONELLA
     Dosage: UNK
  3. AMPICILLIN [Suspect]
     Active Substance: AMPICILLIN
     Indication: GASTROENTERITIS SALMONELLA
     Dosage: UNK
  4. GENTAMICIN SULFATE. [Suspect]
     Active Substance: GENTAMICIN SULFATE
     Indication: GASTROENTERITIS SALMONELLA
     Dosage: UNK

REACTIONS (2)
  - Drug ineffective for unapproved indication [Fatal]
  - Off label use [Unknown]
